FAERS Safety Report 22362495 (Version 2)
Quarter: 2023Q4

REPORT INFORMATION
  Report Type: Report from Study
  Country: US (occurrence: US)
  Receive Date: 20230524
  Receipt Date: 20231204
  Transmission Date: 20240110
  Serious: Yes (Hospitalization)
  Sender: FDA-Public Use
  Company Number: US-BAUSCH-BL-2023-007863

PATIENT
  Age: 59 Year
  Sex: Female

DRUGS (1)
  1. XIFAXAN [Suspect]
     Active Substance: RIFAXIMIN
     Indication: Hepatic encephalopathy
     Dosage: 10 MONTHS
     Route: 048

REACTIONS (5)
  - Sepsis [Unknown]
  - Hepatic enzyme increased [Unknown]
  - Ammonia increased [Unknown]
  - Urinary tract infection [Unknown]
  - Ascites [Unknown]

NARRATIVE: CASE EVENT DATE: 20230509
